FAERS Safety Report 21915142 (Version 1)
Quarter: 2023Q1

REPORT INFORMATION
  Report Type: Spontaneous
  Country: US (occurrence: US)
  Receive Date: 20230126
  Receipt Date: 20230126
  Transmission Date: 20230418
  Serious: No
  Sender: FDA-Public Use
  Company Number: US-CATALYST PHARMACEUTICALS, INC-2022CAT00169

PATIENT
  Age: 76 Year
  Sex: Female

DRUGS (16)
  1. FIRDAPSE [Suspect]
     Active Substance: AMIFAMPRIDINE PHOSPHATE
     Indication: Myasthenic syndrome
     Dosage: 20 MG, 3X/DAY
     Route: 048
     Dates: start: 201903
  2. VITAMINS [Concomitant]
     Active Substance: VITAMINS
     Dosage: 1 CAPSULE
  3. IPRATROPIUM BROMIDE [Concomitant]
     Active Substance: IPRATROPIUM BROMIDE
  4. FOLIC ACID [Concomitant]
     Active Substance: FOLIC ACID
  5. PREDNISONE [Concomitant]
     Active Substance: PREDNISONE
  6. SOLIFENACIN SUCCINATE [Concomitant]
     Active Substance: SOLIFENACIN SUCCINATE
  7. VITAMIN D [Concomitant]
     Active Substance: VITAMIN D NOS
  8. METHOTREXATE [Concomitant]
     Active Substance: METHOTREXATE
  9. FEXOFENADINE [Concomitant]
     Active Substance: FEXOFENADINE HYDROCHLORIDE
  10. CELEXA [Concomitant]
     Active Substance: CITALOPRAM HYDROBROMIDE
  11. MYRBETRIQ [Concomitant]
     Active Substance: MIRABEGRON
  12. PYRIDOSTIGMINE BROMIDE [Concomitant]
     Active Substance: PYRIDOSTIGMINE BROMIDE
  13. NEXIUM [Concomitant]
     Active Substance: ESOMEPRAZOLE MAGNESIUM
  14. ZOLOFT [Concomitant]
     Active Substance: SERTRALINE HYDROCHLORIDE
  15. PROLIA [Concomitant]
     Active Substance: DENOSUMAB
  16. CALCIUM, D3 [Concomitant]

REACTIONS (2)
  - Pain in extremity [Not Recovered/Not Resolved]
  - Muscular weakness [Not Recovered/Not Resolved]

NARRATIVE: CASE EVENT DATE: 20220201
